FAERS Safety Report 18558669 (Version 2)
Quarter: 2020Q4

REPORT INFORMATION
  Report Type: Other
  Country: US (occurrence: US)
  Receive Date: 20201130
  Receipt Date: 20201217
  Transmission Date: 20210114
  Serious: Yes (Death, Hospitalization)
  Sender: FDA-Public Use
  Company Number: US-ROCHE-2717828

PATIENT
  Sex: Male

DRUGS (4)
  1. TECENTRIQ [Suspect]
     Active Substance: ATEZOLIZUMAB
     Indication: LUNG NEOPLASM MALIGNANT
     Dosage: DATE OF TREATMENT: 15/APR/2020, 23/MAR/2020
     Route: 065
  2. CARBOPLATIN. [Concomitant]
     Active Substance: CARBOPLATIN
  3. ETOPOSIDE. [Concomitant]
     Active Substance: ETOPOSIDE
  4. TECENTRIQ [Suspect]
     Active Substance: ATEZOLIZUMAB
     Indication: LIVER DISORDER

REACTIONS (6)
  - Pneumonia [Unknown]
  - Hypoxia [Fatal]
  - Pneumonia [Fatal]
  - Hypobarism [Fatal]
  - Blood electrolytes decreased [Unknown]
  - White blood cell count decreased [Unknown]
